FAERS Safety Report 4376811-8 (Version None)
Quarter: 2004Q2

REPORT INFORMATION
  Report Type: 
  Country: None (occurrence: None)
  Receive Date: 20040608
  Receipt Date: 20040525
  Transmission Date: 20050107
  Serious: Yes (Hospitalization)
  Sender: FDA-Public Use
  Company Number: US-JNJFOC-20040505988

PATIENT
  Age: 43 Year
  Sex: Male
  Weight: 67.1324 kg

DRUGS (6)
  1. REMICADE [Suspect]
     Indication: CROHN'S DISEASE
     Dosage: INTRAVENOUS
     Route: 042
     Dates: start: 20010101
  2. REMICADE [Suspect]
     Indication: CROHN'S DISEASE
     Dosage: INTRAVENOUS
     Route: 042
     Dates: start: 20040301
  3. ASACOL [Concomitant]
  4. MERCAPTOPURINE [Concomitant]
  5. ALBUTEROL [Concomitant]
  6. FLOVENT [Concomitant]

REACTIONS (1)
  - PNEUMONIA ASPERGILLUS [None]
